FAERS Safety Report 8602977-7 (Version None)
Quarter: 2012Q3

REPORT INFORMATION
  Report Type: 
  Country: None (occurrence: None)
  Receive Date: 20120817
  Receipt Date: 20120522
  Transmission Date: 20120928
  Serious: No
  Sender: FDA-Public Use
  Company Number: US-GLAXOSMITHKLINE-A0920456A

PATIENT
  Age: 75 Year
  Sex: Male

DRUGS (14)
  1. HYDROCHLOROTHIAZIDE [Concomitant]
  2. NOVOLOG [Concomitant]
  3. PLAVIX [Concomitant]
  4. FOLIC ACID [Concomitant]
  5. VOTRIENT [Suspect]
     Indication: RENAL CANCER
     Dosage: 800MG PER DAY
     Route: 048
     Dates: start: 20110317
  6. LOTREL [Concomitant]
  7. LOVASTATIN [Concomitant]
  8. TIMOLOL MALEATE [Concomitant]
  9. NIASPAN [Concomitant]
  10. LANTUS [Concomitant]
  11. VITAMIN E [Concomitant]
  12. CARVEDILOL [Concomitant]
  13. ASPIRIN [Concomitant]
  14. TEKTURNA [Concomitant]

REACTIONS (4)
  - FATIGUE [None]
  - EATING DISORDER [None]
  - DYSPEPSIA [None]
  - BLOOD PRESSURE INCREASED [None]
